FAERS Safety Report 12934871 (Version 2)
Quarter: 2016Q4

REPORT INFORMATION
  Report Type: Report from Study
  Country: IT (occurrence: IT)
  Receive Date: 20161112
  Receipt Date: 20161222
  Transmission Date: 20170207
  Serious: Yes (Hospitalization, Other)
  Sender: FDA-Public Use
  Company Number: IT-BRISTOL-MYERS SQUIBB COMPANY-BMS-2016-094203

PATIENT
  Age: 71 Year
  Sex: Female

DRUGS (2)
  1. SOLDESAM [Suspect]
     Active Substance: DEXAMETHASONE
     Indication: PRODUCT USED FOR UNKNOWN INDICATION
     Route: 065
  2. NIVOLUMAB [Suspect]
     Active Substance: NIVOLUMAB
     Indication: NON-SMALL CELL LUNG CANCER
     Dosage: 3 MG/KG, Q2WK
     Route: 042
     Dates: start: 20160310

REACTIONS (10)
  - Respiratory failure [Unknown]
  - Transfusion [Unknown]
  - Asthenia [Unknown]
  - Constipation [Unknown]
  - Haemoglobin abnormal [Unknown]
  - Insomnia [Unknown]
  - Leukocytosis [Unknown]
  - Cough [Unknown]
  - Pyrexia [Not Recovered/Not Resolved]
  - Bronchial obstruction [Unknown]

NARRATIVE: CASE EVENT DATE: 20160323
